FAERS Safety Report 11694300 (Version 4)
Quarter: 2015Q4

REPORT INFORMATION
  Report Type: Spontaneous
  Country: RU (occurrence: RU)
  Receive Date: 20151103
  Receipt Date: 20151211
  Transmission Date: 20160304
  Serious: Yes (Death, Life-Threatening, Hospitalization, Other)
  Sender: FDA-Public Use
  Company Number: RU-BAYER-2015-456515

PATIENT
  Age: 55 Year
  Sex: Male
  Weight: 80 kg

DRUGS (1)
  1. ULTRAVIST [Suspect]
     Active Substance: IOPROMIDE
     Indication: ANGIOGRAM PERIPHERAL
     Dosage: 120 ML, ONCE
     Route: 042
     Dates: start: 20151021, end: 20151021

REACTIONS (36)
  - Hypotonia [Fatal]
  - Cardiac failure [Fatal]
  - Malnutrition [Fatal]
  - Atrial fibrillation [Fatal]
  - Hydrocephalus [None]
  - Sinusitis [None]
  - Gastrointestinal haemorrhage [None]
  - Respiratory failure [Fatal]
  - Cardiac failure [Fatal]
  - Gastric ulcer haemorrhage [None]
  - Multi-organ failure [Fatal]
  - Nephropathy toxic [Fatal]
  - Postresuscitation encephalopathy [Fatal]
  - Cerebrovascular insufficiency [Fatal]
  - Anaemia [None]
  - Septic shock [Fatal]
  - Product quality issue [None]
  - Eyelid oedema [Fatal]
  - Generalised oedema [Fatal]
  - Pleural effusion [None]
  - Lung infiltration [None]
  - Pancytopenia [None]
  - Mouth swelling [Fatal]
  - Leukopenia [None]
  - Hypotension [Fatal]
  - Acute kidney injury [Fatal]
  - Coma [None]
  - Hepatic failure [Fatal]
  - Renal failure [Fatal]
  - Ascites [None]
  - Hydrothorax [Fatal]
  - Anaphylactic shock [Fatal]
  - Loss of consciousness [Fatal]
  - Cardiac arrest [Fatal]
  - Leukocytosis [None]
  - Pneumonia [None]

NARRATIVE: CASE EVENT DATE: 20151021
